FAERS Safety Report 23422264 (Version 1)
Quarter: 2024Q1

REPORT INFORMATION
  Report Type: Spontaneous
  Country: AR (occurrence: AR)
  Receive Date: 20240119
  Receipt Date: 20240119
  Transmission Date: 20240410
  Serious: Yes (Other)
  Sender: FDA-Public Use
  Company Number: AR-EPICPHARMA-AR-2024EPCLIT00063

PATIENT
  Age: 76 Year
  Sex: Female

DRUGS (1)
  1. TRANEXAMIC ACID [Suspect]
     Active Substance: TRANEXAMIC ACID
     Indication: Cardiac operation
     Route: 065

REACTIONS (2)
  - Anaphylactic shock [Unknown]
  - Product use in unapproved indication [Unknown]
